FAERS Safety Report 4796265-7 (Version None)
Quarter: 2005Q4

REPORT INFORMATION
  Report Type: 
  Country: None (occurrence: None)
  Receive Date: 20051007
  Receipt Date: 20050927
  Transmission Date: 20060501
  Serious: Yes (Other)
  Sender: FDA-Public Use
  Company Number: 2005135071

PATIENT
  Age: 73 Year
  Sex: Female
  Weight: 68.0396 kg

DRUGS (6)
  1. LIPITOR [Suspect]
     Indication: BLOOD CHOLESTEROL INCREASED
     Dosage: 10 MG (10 MG, 1 IN 1 D), ORAL
     Route: 048
  2. SINEMET [Concomitant]
  3. BROMOCRIPTINE MESYLATE [Concomitant]
  4. MIRAPEX [Concomitant]
  5. ACETYLSALICYLIC ACID SRT [Concomitant]
  6. FOSAMAX (ALENDRONATE SODUM) [Concomitant]

REACTIONS (1)
  - COLON CANCER [None]
